FAERS Safety Report 4375513-1 (Version None)
Quarter: 2004Q2

REPORT INFORMATION
  Report Type: 
  Country: None (occurrence: None)
  Receive Date: 20040607
  Receipt Date: 20040524
  Transmission Date: 20050107
  Serious: Yes (Other)
  Sender: FDA-Public Use
  Company Number: 232573K04USA

PATIENT
  Age: 33 Year
  Sex: Female

DRUGS (5)
  1. REBIF [Suspect]
     Dosage: 44 MCG
     Dates: start: 20021127
  2. BACLOFEN [Concomitant]
  3. GABAPENTIN [Concomitant]
  4. MECLIZINE HCL [Concomitant]
  5. CLONAZEPAM [Concomitant]

REACTIONS (10)
  - ABNORMAL BEHAVIOUR [None]
  - ATAXIA [None]
  - CONVULSION [None]
  - FUNGAL INFECTION [None]
  - HEMIPARESIS [None]
  - HYPOAESTHESIA [None]
  - PARANOIA [None]
  - SOMNOLENCE [None]
  - STRESS SYMPTOMS [None]
  - URINARY INCONTINENCE [None]
